FAERS Safety Report 9282765 (Version 1)
Quarter: 2013Q2

REPORT INFORMATION
  Report Type: Report from Study
  Country: AR (occurrence: AR)
  Receive Date: 20130510
  Receipt Date: 20130510
  Transmission Date: 20140414
  Serious: Yes (Other)
  Sender: FDA-Public Use
  Company Number: PHHY2013AR045795

PATIENT
  Age: 94 Year
  Sex: Female

DRUGS (2)
  1. EXFORGE D [Suspect]
     Indication: HYPERTENSION
     Route: 048
  2. DIOVAN D [Suspect]

REACTIONS (5)
  - Hypoglycaemia [Unknown]
  - Hyponatraemic syndrome [Not Recovered/Not Resolved]
  - Local swelling [Unknown]
  - Fluid retention [Unknown]
  - Memory impairment [Unknown]
